FAERS Safety Report 19105981 (Version 2)
Quarter: 2021Q3

REPORT INFORMATION
  Report Type: Spontaneous
  Country: DE (occurrence: DE)
  Receive Date: 20210407
  Receipt Date: 20210719
  Transmission Date: 20211014
  Serious: Yes (Other)
  Sender: FDA-Public Use
  Company Number: NVSC2021DE069785

PATIENT
  Age: 62 Year
  Sex: Female

DRUGS (3)
  1. DOCETAXEL. [Suspect]
     Active Substance: DOCETAXEL
     Indication: LUNG ADENOCARCINOMA
     Dosage: UNK
     Route: 065
     Dates: start: 202003, end: 202007
  2. VARGATEF [Suspect]
     Active Substance: NINTEDANIB
     Dosage: UNK
     Route: 065
     Dates: start: 202007, end: 202012
  3. VARGATEF [Suspect]
     Active Substance: NINTEDANIB
     Indication: LUNG ADENOCARCINOMA
     Dosage: UNK
     Route: 065
     Dates: start: 202003, end: 202007

REACTIONS (4)
  - Diarrhoea [Recovering/Resolving]
  - Seizure [Unknown]
  - Liver disorder [Recovering/Resolving]
  - Metastases to central nervous system [Unknown]

NARRATIVE: CASE EVENT DATE: 202012
